FAERS Safety Report 5567074-6 (Version None)
Quarter: 2007Q4

REPORT INFORMATION
  Report Type: 
  Country: None (occurrence: None)
  Receive Date: 20071219
  Receipt Date: 20060523
  Transmission Date: 20080405
  Serious: Yes (Death)
  Sender: FDA-Public Use
  Company Number: US-ROCHE-449351

PATIENT
  Age: 70 Year
  Sex: Female

DRUGS (6)
  1. ROCEPHIN [Suspect]
     Indication: DRUG USE FOR UNKNOWN INDICATION
     Route: 042
     Dates: start: 20060305, end: 20060305
  2. LAMICTAL [Suspect]
     Indication: CONVULSION
     Dosage: FORM REPORTED AS UNSPECIFIED TABLET.
     Route: 048
     Dates: start: 20060201, end: 20060305
  3. LEVODOPA [Concomitant]
  4. ZYPREXA [Concomitant]
  5. EXELON [Concomitant]
  6. SINEMET [Concomitant]

REACTIONS (8)
  - DEHYDRATION [None]
  - GENERALISED ERYTHEMA [None]
  - HYPERNATRAEMIA [None]
  - HYPOTENSION [None]
  - MALNUTRITION [None]
  - RASH GENERALISED [None]
  - RENAL FAILURE [None]
  - RESPIRATORY FAILURE [None]
